FAERS Safety Report 6085915-3 (Version None)
Quarter: 2009Q1

REPORT INFORMATION
  Report Type: 
  Country: None (occurrence: None)
  Receive Date: 20090217
  Receipt Date: 20090217
  Transmission Date: 20090719
  Serious: Yes (Life-Threatening, Hospitalization)
  Sender: FDA-Public Use
  Company Number: None

PATIENT
  Age: 54 Year
  Sex: Female
  Weight: 81.6475 kg

DRUGS (3)
  1. LEVAQUIN [Suspect]
     Indication: BONE GRAFT
     Dosage: 500 MG ONCE DAILY PO
     Route: 048
     Dates: start: 20090214, end: 20090214
  2. LEVAQUIN [Suspect]
     Indication: INFECTION PROPHYLAXIS
     Dosage: 500 MG ONCE DAILY PO
     Route: 048
     Dates: start: 20090214, end: 20090214
  3. LEVAQUIN [Suspect]
     Indication: ORAL SURGERY
     Dosage: 500 MG ONCE DAILY PO
     Route: 048
     Dates: start: 20090214, end: 20090214

REACTIONS (11)
  - BLOOD PRESSURE INCREASED [None]
  - DIZZINESS [None]
  - DYSPNOEA [None]
  - ERYTHEMA [None]
  - HEART RATE INCREASED [None]
  - NO THERAPEUTIC RESPONSE [None]
  - OBSTRUCTIVE AIRWAYS DISORDER [None]
  - PALPITATIONS [None]
  - PRURITUS [None]
  - SWELLING [None]
  - URTICARIA [None]
